FAERS Safety Report 14085745 (Version 1)
Quarter: 2017Q4

REPORT INFORMATION
  Report Type: Spontaneous
  Country: FR (occurrence: FR)
  Receive Date: 20171013
  Receipt Date: 20171013
  Transmission Date: 20180321
  Serious: Yes (Other)
  Sender: FDA-Public Use
  Company Number: FR-MERCK KGAA-2029919

PATIENT
  Age: 61 Year
  Sex: Female

DRUGS (1)
  1. NOVOTHYROX [Suspect]
     Active Substance: LEVOTHYROXINE SODIUM
     Indication: HYPOTHYROIDISM
     Dates: start: 201707

REACTIONS (7)
  - Fatigue [Unknown]
  - Insomnia [Unknown]
  - Arrhythmia [Unknown]
  - Vertigo [Unknown]
  - Memory impairment [Unknown]
  - Blood thyroid stimulating hormone abnormal [Unknown]
  - Myalgia [Unknown]

NARRATIVE: CASE EVENT DATE: 2017
